FAERS Safety Report 16720798 (Version 1)
Quarter: 2019Q3

REPORT INFORMATION
  Report Type: Spontaneous
  Country: GB (occurrence: GB)
  Receive Date: 20190820
  Receipt Date: 20190820
  Transmission Date: 20191005
  Serious: Yes (Other)
  Sender: FDA-Public Use
  Company Number: PHHY2019GB192287

PATIENT
  Age: 50 Year
  Sex: Male
  Weight: 80 kg

DRUGS (1)
  1. PARACETAMOL [Suspect]
     Active Substance: ACETAMINOPHEN
     Indication: HEADACHE
     Dosage: 4000 MG, QD
     Route: 048
     Dates: start: 20020101, end: 20190101

REACTIONS (1)
  - Drug withdrawal headache [Recovering/Resolving]

NARRATIVE: CASE EVENT DATE: 20190101
